FAERS Safety Report 4309415-3 (Version None)
Quarter: 2004Q1

REPORT INFORMATION
  Report Type: 
  Country: None (occurrence: None)
  Receive Date: 20040301
  Receipt Date: 20040219
  Transmission Date: 20041129
  Serious: Yes (Hospitalization)
  Sender: FDA-Public Use
  Company Number: JP-JNJFOC-20040204711

PATIENT
  Age: 42 Year
  Sex: Female
  Weight: 50 kg

DRUGS (5)
  1. REMICADE [Suspect]
     Dosage: 3 MG/KG, 1 IN 1 AS NECESSARY, INTRAVENOUS DRIP; SEE IMAGE
     Route: 041
     Dates: start: 20030918, end: 20030918
  2. REMICADE [Suspect]
     Dosage: 3 MG/KG, 1 IN 1 AS NECESSARY, INTRAVENOUS DRIP; SEE IMAGE
     Route: 041
     Dates: start: 20031006, end: 20031006
  3. REMICADE [Suspect]
     Dosage: 3 MG/KG, 1 IN 1 AS NECESSARY, INTRAVENOUS DRIP; SEE IMAGE
     Route: 041
     Dates: start: 20031105, end: 20031105
  4. REMICADE [Suspect]
     Dosage: 3 MG/KG, 1 IN 1 AS NECESSARY, INTRAVENOUS DRIP; SEE IMAGE
     Route: 041
     Dates: start: 20040107, end: 20040107
  5. RHEUMATREX [Concomitant]

REACTIONS (1)
  - TENDON RUPTURE [None]
